FAERS Safety Report 12217507 (Version 1)
Quarter: 2016Q1

REPORT INFORMATION
  Report Type: Spontaneous
  Country: GB (occurrence: GB)
  Receive Date: 20160329
  Receipt Date: 20160329
  Transmission Date: 20160526
  Serious: Yes (Other)
  Sender: FDA-Public Use
  Company Number: GB-TEVA-646412ACC

PATIENT
  Sex: Male

DRUGS (1)
  1. UNIVER PRHC (PROLONGED RELEASE HARD CAPSULES) [Suspect]
     Active Substance: VERAPAMIL HYDROCHLORIDE
     Indication: ATRIAL FIBRILLATION
     Dosage: PRESCRIBED FIVE YEARS AGO
     Route: 065

REACTIONS (1)
  - Atrial fibrillation [Unknown]
